FAERS Safety Report 17501968 (Version 4)
Quarter: 2020Q2

REPORT INFORMATION
  Report Type: Report from Study
  Country: DE (occurrence: DE)
  Receive Date: 20200305
  Receipt Date: 20200526
  Transmission Date: 20200713
  Serious: No
  Sender: FDA-Public Use
  Company Number: NVSC2020DE062383

PATIENT
  Sex: Female
  Weight: 70 kg

DRUGS (20)
  1. COSENTYX [Suspect]
     Active Substance: SECUKINUMAB
     Indication: PSORIATIC ARTHROPATHY
     Dosage: 150 MG, ONCE/SINGLE (PER APPLICATION)
     Route: 065
     Dates: start: 20190401, end: 20190401
  2. COSENTYX [Suspect]
     Active Substance: SECUKINUMAB
     Dosage: 150 MG, ONCE/SINGLE (PER APPLICATION)
     Route: 065
     Dates: start: 20190408, end: 20190408
  3. COSENTYX [Suspect]
     Active Substance: SECUKINUMAB
     Dosage: 150 MG, ONCE/SINGLE (PER APPLICATION)
     Route: 065
     Dates: start: 20190415, end: 20190415
  4. COSENTYX [Suspect]
     Active Substance: SECUKINUMAB
     Dosage: 150 MG, ONCE/SINGLE (PER APPLICATION)
     Route: 065
     Dates: start: 20190929, end: 20190929
  5. COSENTYX [Suspect]
     Active Substance: SECUKINUMAB
     Dosage: 150 MG, ONCE/SINGLE (PER APPLICATION)
     Route: 065
     Dates: start: 20191029, end: 20191029
  6. COSENTYX [Suspect]
     Active Substance: SECUKINUMAB
     Dosage: 150 MG, ONCE/SINGLE (PER APPLICATION)
     Route: 065
     Dates: start: 20190529, end: 20190529
  7. COSENTYX [Suspect]
     Active Substance: SECUKINUMAB
     Dosage: 150 MG, ONCE/SINGLE (PER APPLICATION)
     Route: 065
     Dates: start: 20190829, end: 20190829
  8. COSENTYX [Suspect]
     Active Substance: SECUKINUMAB
     Dosage: 150 MG, ONCE/SINGLE (PER APPLICATION)
     Route: 065
     Dates: start: 20191129, end: 20191129
  9. COSENTYX [Suspect]
     Active Substance: SECUKINUMAB
     Dosage: 150 MG, ONCE/SINGLE (PER APPLICATION)
     Route: 065
     Dates: start: 20200129
  10. NOVAMINSULFON [Concomitant]
     Active Substance: METAMIZOLE
     Indication: FIBROMYALGIA
     Dosage: 500 MG, PRN (400-500 MG)
     Route: 048
     Dates: start: 20120315
  11. COSENTYX [Suspect]
     Active Substance: SECUKINUMAB
     Dosage: 150 MG, ONCE/SINGLE (PER APPLICATION)
     Route: 065
     Dates: start: 20191229, end: 20191229
  12. FOLIC ACID. [Concomitant]
     Active Substance: FOLIC ACID
     Indication: SUPPLEMENTATION THERAPY
     Dosage: 5 MG, Q24H (1X1)
     Route: 048
     Dates: start: 20170717
  13. COSENTYX [Suspect]
     Active Substance: SECUKINUMAB
     Dosage: 150 MG, ONCE/SINGLE (PER APPLICATION)
     Route: 065
     Dates: start: 20190422, end: 20190422
  14. IBUPROFEN. [Concomitant]
     Active Substance: IBUPROFEN
     Indication: PSORIATIC ARTHROPATHY
     Dosage: 600 MG, PRN
     Route: 048
     Dates: start: 20150601
  15. COSENTYX [Suspect]
     Active Substance: SECUKINUMAB
     Dosage: 150 MG, ONCE/SINGLE (PER APPLICATION)
     Route: 065
     Dates: start: 20190429, end: 20190429
  16. COSENTYX [Suspect]
     Active Substance: SECUKINUMAB
     Dosage: 150 MG, ONCE/SINGLE (PER APPLICATION)
     Route: 065
     Dates: start: 20190729, end: 20190729
  17. METHOTREXATE. [Concomitant]
     Active Substance: METHOTREXATE
     Indication: PSORIATIC ARTHROPATHY
     Dosage: 15 MG, QW
     Route: 058
     Dates: start: 20190401
  18. COSENTYX [Suspect]
     Active Substance: SECUKINUMAB
     Dosage: 150 MG, ONCE/SINGLE (PER APPLICATION)
     Route: 065
     Dates: start: 20190629, end: 20190629
  19. NOVAMINSULFON [Concomitant]
     Active Substance: METAMIZOLE
     Indication: PSORIATIC ARTHROPATHY
  20. VIGANTOLETTEN [Concomitant]
     Active Substance: CHOLECALCIFEROL
     Indication: VITAMIN D DEFICIENCY
     Dosage: 500 IU, QD
     Route: 048
     Dates: start: 20150914

REACTIONS (1)
  - Upper respiratory tract infection [Recovered/Resolved]

NARRATIVE: CASE EVENT DATE: 202001
